FAERS Safety Report 14914218 (Version 1)
Quarter: 2018Q2

REPORT INFORMATION
  Report Type: Spontaneous
  Country: DK (occurrence: DK)
  Receive Date: 20180518
  Receipt Date: 20180518
  Transmission Date: 20180711
  Serious: No
  Sender: FDA-Public Use
  Company Number: DK-JAZZ-2018-DK-001718

PATIENT
  Age: 31 Year
  Sex: Male
  Weight: 64.85 kg

DRUGS (1)
  1. XYREM [Suspect]
     Active Substance: SODIUM OXYBATE
     Indication: NARCOLEPSY
     Dosage: UNK
     Route: 048
     Dates: start: 20121004

REACTIONS (4)
  - Muscle contractions involuntary [Not Recovered/Not Resolved]
  - Muscular weakness [Not Recovered/Not Resolved]
  - Exercise tolerance decreased [Not Recovered/Not Resolved]
  - Pain in extremity [Not Recovered/Not Resolved]
